FAERS Safety Report 26061622 (Version 2)
Quarter: 2025Q4

REPORT INFORMATION
  Report Type: Report from Study
  Country: GB (occurrence: GB)
  Receive Date: 20251118
  Receipt Date: 20251129
  Transmission Date: 20260117
  Serious: Yes (Other)
  Sender: CELLTRION
  Company Number: GB-CELLTRION INC.-2025GB041635

PATIENT

DRUGS (2)
  1. INFLIXIMAB-DYYB [Suspect]
     Active Substance: INFLIXIMAB-DYYB
     Indication: Crohn^s disease
     Dosage: 2 X REMSIMA 120MG/1ML SOLUTION FOR INJECTION PRE-FILLED PENS INJECT ONE PRE-FILLED PEN EVERY TWO WEE
     Route: 058
     Dates: start: 20251009
  2. INFLIXIMAB-DYYB [Suspect]
     Active Substance: INFLIXIMAB-DYYB
     Dosage: UNK
     Dates: start: 20251109

REACTIONS (8)
  - Syncope [Unknown]
  - Hypoaesthesia oral [Recovered/Resolved]
  - Asthenia [Unknown]
  - Blood disorder [Unknown]
  - Malaise [Unknown]
  - Nasopharyngitis [Unknown]
  - Influenza [Unknown]
  - Intentional dose omission [Unknown]
